FAERS Safety Report 4963238-0 (Version None)
Quarter: 2006Q2

REPORT INFORMATION
  Report Type: 
  Country: None (occurrence: None)
  Receive Date: 20060405
  Receipt Date: 20051215
  Transmission Date: 20061013
  Serious: Yes (Hospitalization, Disabling)
  Sender: FDA-Public Use
  Company Number: US-MERCK-0512USA02523

PATIENT
  Age: 76 Year
  Sex: Male
  Weight: 91 kg

DRUGS (15)
  1. VIOXX [Suspect]
     Indication: ARTHRITIS
     Route: 048
     Dates: start: 20020701, end: 20040901
  2. ECOTRIN [Concomitant]
     Indication: OSTEOARTHRITIS
     Route: 065
  3. PREVACID [Concomitant]
     Indication: DYSPEPSIA
     Route: 065
  4. IMDUR [Concomitant]
     Route: 065
     Dates: start: 20030101
  5. LIPITOR [Concomitant]
     Indication: BLOOD CHOLESTEROL
     Route: 065
     Dates: start: 20010101
  6. NORVASC [Concomitant]
     Indication: BLOOD PRESSURE
     Route: 065
     Dates: start: 20010101
  7. NORVASC [Concomitant]
     Indication: CHEST PAIN
     Route: 065
     Dates: start: 20010101
  8. GLUCOSAMINE [Concomitant]
     Route: 065
  9. FLOMAX (MORNIFLUMATE) [Concomitant]
     Indication: URINE ABNORMALITY
     Route: 065
  10. TYLENOL (CAPLET) [Concomitant]
     Route: 065
  11. TRAMADOL HYDROCHLORIDE [Concomitant]
     Indication: PAIN
     Route: 065
     Dates: end: 20030101
  12. LASIX [Concomitant]
     Indication: SWELLING
     Route: 065
  13. ETODOLAC [Concomitant]
     Indication: ARTHRITIS
     Route: 065
     Dates: start: 20050101
  14. NEXIUM [Concomitant]
     Indication: DYSPEPSIA
     Route: 065
  15. NITROSTAT [Concomitant]
     Indication: CHEST PAIN
     Route: 065

REACTIONS (9)
  - ANGINA UNSTABLE [None]
  - ASTHENIA [None]
  - CARDIOVASCULAR DISORDER [None]
  - HEAD INJURY [None]
  - INJURY [None]
  - INTERNAL INJURY [None]
  - LIMB INJURY [None]
  - MYOCARDIAL INFARCTION [None]
  - NERVOUS SYSTEM DISORDER [None]
